FAERS Safety Report 8142437-3 (Version None)
Quarter: 2012Q1

REPORT INFORMATION
  Report Type: 
  Country: None (occurrence: None)
  Receive Date: 20120216
  Receipt Date: 20120210
  Transmission Date: 20120608
  Serious: Yes (Other)
  Sender: FDA-Public Use
  Company Number: GR-JNJFOC-20120205401

PATIENT
  Age: 23 Year
  Sex: Female

DRUGS (1)
  1. SIMPONI [Suspect]
     Indication: RHEUMATOID ARTHRITIS
     Route: 058
     Dates: start: 20110707, end: 20111107

REACTIONS (2)
  - PAIN IN EXTREMITY [None]
  - COLITIS [None]
